FAERS Safety Report 10063271 (Version 1)
Quarter: 2014Q2

REPORT INFORMATION
  Report Type: Spontaneous
  Country: DK (occurrence: DK)
  Receive Date: 20140407
  Receipt Date: 20140407
  Transmission Date: 20141212
  Serious: Yes (Hospitalization)
  Sender: FDA-Public Use
  Company Number: DK-ELI_LILLY_AND_COMPANY-DK201404000270

PATIENT
  Age: 63 Year
  Sex: Male

DRUGS (5)
  1. EFIENT [Suspect]
     Indication: STENT PLACEMENT
     Dosage: UNK UNK, UNKNOWN
     Route: 065
     Dates: start: 201207
  2. HJERTEMAGNYL                       /00228701/ [Suspect]
     Indication: THROMBOSIS PROPHYLAXIS
     Dosage: 75 MG, QD
     Route: 048
     Dates: start: 201207
  3. ACETYLSALICYLSYRE [Suspect]
     Indication: THROMBOSIS PROPHYLAXIS
     Dosage: 10 MG, QD
     Route: 048
     Dates: start: 201207
  4. SIMVASTATIN [Concomitant]
     Dosage: UNK
     Dates: start: 201207
  5. RAMIPRIL [Concomitant]

REACTIONS (6)
  - Compartment syndrome [Unknown]
  - Limb injury [Unknown]
  - Haematoma [Unknown]
  - Scar [Unknown]
  - Sensory disturbance [Unknown]
  - Mobility decreased [Unknown]
